FAERS Safety Report 9465602 (Version 1)
Quarter: 2013Q3

REPORT INFORMATION
  Report Type: Spontaneous
  Country: US (occurrence: US)
  Receive Date: 20130820
  Receipt Date: 20130820
  Transmission Date: 20140515
  Serious: Yes (Hospitalization)
  Sender: FDA-Public Use
  Company Number: US-PAR PHARMACEUTICAL, INC-2013SCPR006103

PATIENT
  Sex: 0

DRUGS (6)
  1. MORPHINE SULFATE [Suspect]
     Indication: PAIN
     Dosage: 100 MG, BID
     Route: 048
  2. MORPHINE SULFATE [Suspect]
     Indication: PAIN
     Dosage: 60 MG, EVERY 2 HOURS AS NEEDED
     Route: 060
  3. HYDROMORPHONE [Suspect]
     Indication: PAIN
     Dosage: 8 TO 16 MG, EVERY 2 HOURS AS NEEDED
     Route: 048
  4. GABAPENTIN [Concomitant]
     Indication: PAIN
     Dosage: 1200 MG, TID
     Route: 048
  5. IBUPROFEN [Concomitant]
     Indication: PAIN
     Dosage: 800 MG, TID
     Route: 048
  6. OXYCODONE [Concomitant]
     Indication: PAIN
     Dosage: 40 MG, TID
     Route: 048

REACTIONS (2)
  - Allodynia [Recovering/Resolving]
  - Hyperaesthesia [Unknown]
